FAERS Safety Report 7221794-6 (Version None)
Quarter: 2011Q1

REPORT INFORMATION
  Report Type: 
  Country: None (occurrence: None)
  Receive Date: 20110112
  Receipt Date: 20110104
  Transmission Date: 20110831
  Serious: Yes (Hospitalization, Other)
  Sender: FDA-Public Use
  Company Number: FR-KINGPHARMUSA00001-K201001276

PATIENT
  Sex: Male
  Weight: 115.7 kg

DRUGS (18)
  1. FRUSEMIDE [Suspect]
     Indication: CORONARY ARTERY DISEASE
     Dosage: 20 MG, QD
     Route: 048
  2. MOTILIUM [Concomitant]
     Dosage: UNK
     Dates: start: 20100920, end: 20100924
  3. NOVORAPID [Concomitant]
     Dosage: UNK
     Dates: start: 20100928
  4. LANTUS [Concomitant]
     Dosage: UNK
     Dates: start: 20100928
  5. ASA [Suspect]
  6. CARVEDILOL [Concomitant]
  7. INSULIN [Concomitant]
     Dosage: UNK
     Dates: start: 20100924, end: 20100928
  8. METFORMIN [Suspect]
     Dosage: 3000 MG, QD
     Route: 048
     Dates: end: 20100924
  9. ALTACE [Suspect]
     Dosage: 10 MG, QD
     Route: 048
  10. PLACEBO [Suspect]
     Dosage: UNK
     Route: 048
     Dates: start: 20100811, end: 20100924
  11. AMARYL [Concomitant]
     Dosage: 4 MG, UNK
     Dates: end: 20100924
  12. LOPERAMIDE HYDROCHLORIDE [Concomitant]
     Dosage: UNK
     Dates: start: 20100807, end: 20100823
  13. STEMETIL [Concomitant]
     Dosage: UNK
     Dates: start: 20100820, end: 20100906
  14. PANTOPRAZOLE [Suspect]
     Dosage: 20 MG, QD
     Route: 048
     Dates: start: 20100904, end: 20100924
  15. ACETAMINOPHEN AND CODEINE PHOSPHATE [Concomitant]
  16. ENDEP [Concomitant]
  17. ATORVASTATIN [Concomitant]
     Dosage: UNK
     Dates: end: 20100924
  18. MIXTARD HUMAN 70/30 [Concomitant]
     Dosage: UNK
     Dates: start: 20100601, end: 20100924

REACTIONS (3)
  - REFLUX GASTRITIS [None]
  - RENAL FAILURE ACUTE [None]
  - LACTIC ACIDOSIS [None]
